FAERS Safety Report 7879300-9 (Version None)
Quarter: 2011Q4

REPORT INFORMATION
  Report Type: 
  Country: None (occurrence: None)
  Receive Date: 20111101
  Receipt Date: 20111027
  Transmission Date: 20120403
  Serious: Yes (Hospitalization, Other)
  Sender: FDA-Public Use
  Company Number: US-PFIZER INC-2011263859

PATIENT
  Sex: Female
  Weight: 70.748 kg

DRUGS (3)
  1. LOPRESSOR [Concomitant]
     Indication: HYPERTENSION
     Dosage: UNK
  2. PRISTIQ [Suspect]
     Indication: ANXIETY
     Dosage: 50 MG, DAILY
  3. BENICAR HCT [Suspect]
     Indication: HYPERTENSION
     Dosage: 40 MG, DAILY
     Dates: start: 20110101, end: 20111001

REACTIONS (2)
  - BLOOD SODIUM DECREASED [None]
  - LOSS OF CONSCIOUSNESS [None]
